FAERS Safety Report 5804679-9 (Version None)
Quarter: 2008Q3

REPORT INFORMATION
  Report Type: 
  Country: None (occurrence: None)
  Receive Date: 20080709
  Receipt Date: 20080626
  Transmission Date: 20090109
  Serious: Yes (Other)
  Sender: FDA-Public Use
  Company Number: US-BAYER-200825409NA

PATIENT
  Age: 52 Year
  Sex: Male

DRUGS (7)
  1. CIPRO [Suspect]
     Indication: INFLUENZA
     Dosage: TOTAL DAILY DOSE: 1000 MG  UNIT DOSE: 500 MG
     Route: 048
     Dates: start: 19980101, end: 19980101
  2. CIPRO XR [Suspect]
     Indication: PROPHYLAXIS
     Dosage: TOTAL DAILY DOSE: 1000 MG  UNIT DOSE: 1000 MG
     Route: 048
     Dates: start: 20040101, end: 20040101
  3. LYRICA [Concomitant]
  4. FENTANYL TRANSDERMAL SYSTEM [Concomitant]
  5. CYMBALTA [Concomitant]
  6. KLONOPIN [Concomitant]
  7. PAXIL [Concomitant]

REACTIONS (13)
  - DEPRESSION [None]
  - DYSKINESIA [None]
  - FATIGUE [None]
  - HAEMORRHOIDAL HAEMORRHAGE [None]
  - IMPAIRED WORK ABILITY [None]
  - INSOMNIA [None]
  - MUSCLE INJURY [None]
  - MYALGIA [None]
  - NEUROPATHY PERIPHERAL [None]
  - PANIC ATTACK [None]
  - SUICIDE ATTEMPT [None]
  - TENDON RUPTURE [None]
  - TREMOR [None]
